FAERS Safety Report 10751105 (Version 1)
Quarter: 2015Q1

REPORT INFORMATION
  Report Type: Spontaneous
  Country: DE (occurrence: None)
  Receive Date: 20150128
  Receipt Date: 20150128
  Transmission Date: 20150721
  Serious: Yes (Death)
  Sender: FDA-Public Use
  Company Number: INT_00668_2015

PATIENT

DRUGS (2)
  1. PACLITAXEL (PACLITAXEL) (HQ SPECIALTY) [Suspect]
     Active Substance: PACLITAXEL
     Indication: ADENOCARCINOMA
     Dosage: [ON DAYS 1, 8. AND 15 OF A 28-DAY CYCLE]
     Route: 042
  2. RAMUCIRUMAB [Suspect]
     Active Substance: RAMUCIRUMAB
     Indication: ADENOCARCINOMA
     Dosage: [ON DAYS 1 AND 15 OF A 28 DAY CYCLE]
     Route: 042

REACTIONS (1)
  - Malabsorption [None]
